FAERS Safety Report 5706323-8 (Version None)
Quarter: 2008Q2

REPORT INFORMATION
  Report Type: 
  Country: None (occurrence: None)
  Receive Date: 20080409
  Receipt Date: 20071029
  Transmission Date: 20081010
  Serious: Yes (Hospitalization)
  Sender: FDA-Public Use
  Company Number: 158

PATIENT
  Sex: Female
  Weight: 125.1928 kg

DRUGS (3)
  1. FAZACLO ODT [Suspect]
     Indication: SCHIZOAFFECTIVE DISORDER
     Dosage: 200 MG PO DAILY
     Route: 048
     Dates: start: 20070714
  2. BENZTROPINE MESYLATE [Concomitant]
  3. SYNTHROID [Concomitant]

REACTIONS (1)
  - PSYCHOTIC DISORDER [None]
